FAERS Safety Report 12431776 (Version 1)
Quarter: 2016Q2

REPORT INFORMATION
  Report Type: Spontaneous
  Country: US (occurrence: US)
  Receive Date: 20160603
  Receipt Date: 20160603
  Transmission Date: 20160815
  Serious: No
  Sender: FDA-Public Use
  Company Number: US-SUN PHARMACEUTICAL INDUSTRIES LTD-2015SUN01804

PATIENT

DRUGS (10)
  1. TECHNETIUM TC-99M SULFUR COLLOID KIT [Suspect]
     Active Substance: TECHNETIUM TC-99M SULFUR COLLOID
     Indication: GASTRIC EMPTYING STUDY
     Dosage: 1 MCI, OD
     Route: 048
     Dates: start: 20150723, end: 20150723
  2. XANAX [Concomitant]
     Active Substance: ALPRAZOLAM
  3. QVAR [Concomitant]
     Active Substance: BECLOMETHASONE DIPROPIONATE
  4. APRI [Concomitant]
     Active Substance: DESOGESTREL\ETHINYL ESTRADIOL
  5. PROVENTAL INHALER [Concomitant]
  6. WELLBUTRIN [Concomitant]
     Active Substance: BUPROPION HYDROCHLORIDE
  7. CYMBALTA [Concomitant]
     Active Substance: DULOXETINE HYDROCHLORIDE
  8. PRILOSEC [Concomitant]
     Active Substance: OMEPRAZOLE MAGNESIUM
  9. TRAMADOL. [Concomitant]
     Active Substance: TRAMADOL
  10. NEUROTIN [Concomitant]
     Active Substance: GABAPENTIN

REACTIONS (5)
  - Rash erythematous [None]
  - Skin burning sensation [None]
  - Rash macular [None]
  - Rash [Recovering/Resolving]
  - Miliaria [None]
